FAERS Safety Report 14732524 (Version 2)
Quarter: 2018Q3

REPORT INFORMATION
  Report Type: Spontaneous
  Country: US (occurrence: US)
  Receive Date: 20180409
  Receipt Date: 20180725
  Transmission Date: 20181010
  Serious: No
  Sender: FDA-Public Use
  Company Number: US-JNJFOC-20180327964

PATIENT
  Sex: Female

DRUGS (3)
  1. PEPCID AC MAXIMUM STRENGTH [Suspect]
     Active Substance: FAMOTIDINE
     Indication: GASTROOESOPHAGEAL REFLUX DISEASE
     Dosage: 1?2 PILLS PER DAY BEFORE MEALS
     Route: 065
     Dates: start: 201803
  2. PEPCID AC MAXIMUM STRENGTH [Suspect]
     Active Substance: FAMOTIDINE
     Indication: GASTRIC DISORDER
     Dosage: 1?2 PILLS PER DAY BEFORE MEALS
     Route: 065
     Dates: start: 201803
  3. RESTERAL [Concomitant]
     Indication: INSOMNIA
     Route: 065
     Dates: start: 201802

REACTIONS (1)
  - Drug ineffective [Unknown]
